FAERS Safety Report 20637567 (Version 1)
Quarter: 2022Q1

REPORT INFORMATION
  Report Type: Report from Study
  Country: IN (occurrence: IN)
  Receive Date: 20220325
  Receipt Date: 20220325
  Transmission Date: 20220423
  Serious: Yes (Hospitalization, Other)
  Sender: FDA-Public Use
  Company Number: IN-NOVARTISPH-NVSC2019IN073811

PATIENT
  Age: 36 Year
  Sex: Male

DRUGS (12)
  1. SIMULECT [Suspect]
     Active Substance: BASILIXIMAB
     Indication: Renal transplant
     Dosage: 20 MG
     Route: 042
     Dates: start: 20191107
  2. SIMULECT [Suspect]
     Active Substance: BASILIXIMAB
     Dosage: 20 MG
     Route: 042
     Dates: start: 20191111
  3. TACROLIMUS [Concomitant]
     Active Substance: TACROLIMUS
     Indication: Product used for unknown indication
     Dosage: 6.5 MG, BID FOR 7 DAYS (AT 8AM AND 8PM)
     Route: 065
  4. CELLCEPT [Concomitant]
     Active Substance: MYCOPHENOLATE MOFETIL
     Indication: Product used for unknown indication
     Dosage: 1 MG, BID FOR 7 DAYS AT 8AM + 8PM
     Route: 065
  5. PREDNISOLONE [Concomitant]
     Active Substance: PREDNISOLONE
     Indication: Product used for unknown indication
     Dosage: 20 MG, QD, FOR 7 DAYS (WITH MILK AT 8AM)
     Route: 065
  6. CETANIL [Concomitant]
     Indication: Hypertension
     Dosage: 10 MG, BID
     Route: 065
  7. SEPTRA DS [Concomitant]
     Active Substance: SULFAMETHOXAZOLE\TRIMETHOPRIM
     Indication: Product used for unknown indication
     Dosage: 1 DOSAGE FORM, QD FOR 7 DAYS
     Route: 065
  8. CALCIUM CARBONATE\CHOLECALCIFEROL [Concomitant]
     Active Substance: CALCIUM CARBONATE\CHOLECALCIFEROL
     Indication: Product used for unknown indication
     Dosage: 1 DOSAGE FORM, BID FOR 7 DAYS
     Route: 065
  9. PROLOMET [Concomitant]
     Indication: Product used for unknown indication
     Dosage: 50 MG, BID FOR 7 DAYS (AT 9AM AND 9PM)
     Route: 065
  10. NIFEDIPINE [Concomitant]
     Active Substance: NIFEDIPINE
     Indication: Product used for unknown indication
     Dosage: 30 MG, BID FOR 7 DAYS AT 10AM + 10PM
     Route: 065
  11. PRAZOPRESS [Concomitant]
     Indication: Product used for unknown indication
     Dosage: 5 MG, BID FOR 7 DAYS AT 7AM AND 7PM
     Route: 065
  12. RANITIDINE HYDROCHLORIDE [Concomitant]
     Active Substance: RANITIDINE HYDROCHLORIDE
     Indication: Product used for unknown indication
     Dosage: 150 MG, QD FOR 7 DAYS BEFORE FOOD
     Route: 065

REACTIONS (5)
  - Kidney transplant rejection [Not Recovered/Not Resolved]
  - Complications of transplanted kidney [Unknown]
  - Haemorrhage [Unknown]
  - Postoperative hypertension [Unknown]
  - Accelerated hypertension [Unknown]

NARRATIVE: CASE EVENT DATE: 20191113
